FAERS Safety Report 5637523-3 (Version None)
Quarter: 2008Q1

REPORT INFORMATION
  Report Type: 
  Country: None (occurrence: None)
  Receive Date: 20080225
  Receipt Date: 20080213
  Transmission Date: 20080703
  Serious: Yes (Other)
  Sender: FDA-Public Use
  Company Number: US-PFIZER INC-2008014930

PATIENT
  Sex: Male

DRUGS (4)
  1. CHANTIX [Suspect]
     Indication: SMOKING CESSATION THERAPY
     Dates: start: 20070901, end: 20070901
  2. ASPIRIN [Concomitant]
  3. VITAMIN CAP [Concomitant]
  4. STATINS [Concomitant]
     Indication: BLOOD CHOLESTEROL INCREASED

REACTIONS (6)
  - AGGRESSION [None]
  - ANGER [None]
  - IRRITABILITY [None]
  - PERSONALITY CHANGE [None]
  - SCREAMING [None]
  - SUICIDAL IDEATION [None]
